FAERS Safety Report 5903675-0 (Version None)
Quarter: 2008Q3

REPORT INFORMATION
  Report Type: 
  Country: None (occurrence: None)
  Receive Date: 20080930
  Receipt Date: 20080918
  Transmission Date: 20090109
  Serious: Yes (Other)
  Sender: FDA-Public Use
  Company Number: BR-PFIZER INC-2008079128

PATIENT
  Sex: Male
  Weight: 65 kg

DRUGS (7)
  1. DETRUSITOL LA [Suspect]
     Indication: URINARY INCONTINENCE
     Route: 048
     Dates: start: 20080801
  2. TOLTERODINE TARTRATE [Suspect]
     Indication: HYPERTONIC BLADDER
     Route: 048
     Dates: start: 20080101
  3. ENALAPRIL MALEATE [Concomitant]
     Route: 065
  4. HYGROTON [Concomitant]
     Route: 065
  5. ATENOLOL [Concomitant]
     Route: 065
  6. ALL OTHER THERAPEUTIC PRODUCTS [Concomitant]
     Route: 065
  7. AMLODIPINE [Concomitant]

REACTIONS (3)
  - DRUG INEFFECTIVE [None]
  - POLYURIA [None]
  - URINARY RETENTION [None]
